FAERS Safety Report 20970257 (Version 1)
Quarter: 2022Q2

REPORT INFORMATION
  Report Type: Spontaneous
  Country: CH (occurrence: None)
  Receive Date: 20220616
  Receipt Date: 20220616
  Transmission Date: 20220720
  Serious: Yes (Other)
  Sender: FDA-Public Use
  Company Number: CH-ROCHE-3118112

PATIENT
  Age: 18 Year
  Sex: Male

DRUGS (9)
  1. CLONAZEPAM [Suspect]
     Active Substance: CLONAZEPAM
     Indication: Product used for unknown indication
     Route: 048
     Dates: start: 20220405, end: 20220516
  2. VALPROATE SODIUM [Suspect]
     Active Substance: VALPROATE SODIUM
     Indication: Product used for unknown indication
     Route: 048
     Dates: start: 20220416, end: 20220424
  3. VALPROATE SODIUM [Suspect]
     Active Substance: VALPROATE SODIUM
     Route: 048
     Dates: start: 20220425, end: 20220502
  4. VALPROATE SODIUM [Suspect]
     Active Substance: VALPROATE SODIUM
     Route: 048
     Dates: start: 20220503, end: 202205
  5. VALPROATE SODIUM [Suspect]
     Active Substance: VALPROATE SODIUM
     Dosage: DOSE SUBSEQUENTLY REDUCED, DATE AND DOSAGE UNKNOWN
     Route: 048
     Dates: start: 202205
  6. CLOZAPINE [Concomitant]
     Active Substance: CLOZAPINE
     Route: 048
     Dates: start: 20220503, end: 20220515
  7. CLOZAPINE [Concomitant]
     Active Substance: CLOZAPINE
     Route: 048
     Dates: start: 20220516
  8. TEMESTA [Concomitant]
     Route: 048
     Dates: start: 20220405
  9. AKINETON [Concomitant]
     Active Substance: BIPERIDEN HYDROCHLORIDE
     Route: 048
     Dates: start: 20220514, end: 20220519

REACTIONS (2)
  - Photosensitivity reaction [Recovered/Resolved]
  - Pruritus [Recovered/Resolved]

NARRATIVE: CASE EVENT DATE: 20220517
